FAERS Safety Report 18505685 (Version 1)
Quarter: 2020Q4

REPORT INFORMATION
  Report Type: Spontaneous
  Country: CA (occurrence: CA)
  Receive Date: 20201116
  Receipt Date: 20201116
  Transmission Date: 20210114
  Serious: Yes (Death, Other)
  Sender: FDA-Public Use
  Company Number: CA-GLAXOSMITHKLINE-CA2020GSK224258

PATIENT
  Sex: Female

DRUGS (1)
  1. AVANDIA [Suspect]
     Active Substance: ROSIGLITAZONE MALEATE
     Indication: DIABETES MELLITUS
     Dosage: 4 MG, QD
     Route: 048
     Dates: start: 20050617, end: 20070907

REACTIONS (5)
  - Myocardial infarction [Fatal]
  - Hypertension [Unknown]
  - Cardiovascular disorder [Unknown]
  - Cardiac disorder [Unknown]
  - Type 2 diabetes mellitus [Unknown]
